FAERS Safety Report 6472378-9 (Version None)
Quarter: 2009Q4

REPORT INFORMATION
  Report Type: 
  Country: None (occurrence: None)
  Receive Date: 20091130
  Receipt Date: 20091110
  Transmission Date: 20100525
  Serious: Yes (Disabling, Other)
  Sender: FDA-Public Use
  Company Number: AUR-APL-2009-01252

PATIENT
  Age: 59 Year
  Sex: Male
  Weight: 76 kg

DRUGS (10)
  1. CITALOPRAM [Suspect]
     Indication: DEPRESSION
     Dosage: 20MG, ORAL
     Route: 048
  2. ASPIRIN [Concomitant]
  3. ATENOLOL [Concomitant]
  4. BETNOVATE [Concomitant]
  5. COAL TAR EXTRACT [Concomitant]
  6. DOVONEX [Concomitant]
  7. EXOREX [Concomitant]
  8. FUROSEMIDE [Concomitant]
  9. LOSARTAN [Concomitant]
  10. SIMVASTATIN [Concomitant]

REACTIONS (1)
  - DEAFNESS TRANSITORY [None]
